FAERS Safety Report 12121196 (Version 1)
Quarter: 2016Q1

REPORT INFORMATION
  Report Type: Spontaneous
  Country: US (occurrence: US)
  Receive Date: 20160226
  Receipt Date: 20160226
  Transmission Date: 20160526
  Serious: No
  Sender: FDA-Public Use
  Company Number: US-ALLERGAN-1103354US

PATIENT
  Age: 37 Year
  Sex: Female

DRUGS (2)
  1. RESTASIS [Concomitant]
     Active Substance: CYCLOSPORINE
  2. REFRESH OPTIVE SENSITIVE [Suspect]
     Active Substance: CARBOXYMETHYLCELLULOSE SODIUM\GLYCERIN
     Indication: POSTOPERATIVE CARE
     Dosage: 1 GTT, Q3HR
     Route: 047

REACTIONS (2)
  - Eye disorder [Recovered/Resolved]
  - Eye discharge [Recovered/Resolved]
